FAERS Safety Report 21515532 (Version 1)
Quarter: 2022Q4

REPORT INFORMATION
  Report Type: Spontaneous
  Country: DE (occurrence: DE)
  Receive Date: 20221027
  Receipt Date: 20221027
  Transmission Date: 20230113
  Serious: Yes (Hospitalization)
  Sender: FDA-Public Use
  Company Number: DE-ALLERGAN-2235230US

PATIENT
  Sex: Female

DRUGS (7)
  1. MEMANTINE [Suspect]
     Active Substance: MEMANTINE
     Indication: Product used for unknown indication
     Dosage: 20 MG, QAM
  2. RAMIPRIL [Suspect]
     Active Substance: RAMIPRIL
     Indication: Product used for unknown indication
     Dosage: 2.5 MG, QAM
  3. PHENPROCOUMON [Suspect]
     Active Substance: PHENPROCOUMON
     Indication: Product used for unknown indication
     Dosage: 3 MG
  4. VERAPAMIL [Suspect]
     Active Substance: VERAPAMIL HYDROCHLORIDE
     Indication: Product used for unknown indication
     Dosage: 120 MG, BID
  5. SIMVASTATIN [Suspect]
     Active Substance: SIMVASTATIN
     Indication: Product used for unknown indication
     Dosage: 20 MG, QD
  6. VITAMIN B12 DEPOT HEVERT [Concomitant]
     Dosage: 0.02 MG, QAM
     Route: 048
  7. Fluticasonfuroat/vilanterol [Concomitant]
     Dosage: 1 DF, QD

REACTIONS (6)
  - Depressed level of consciousness [Unknown]
  - Personality change [Unknown]
  - Fall [Unknown]
  - Balance disorder [Unknown]
  - Visual impairment [Unknown]
  - Gait disturbance [Unknown]
